FAERS Safety Report 9748218 (Version 1)
Quarter: 2013Q4

REPORT INFORMATION
  Report Type: Spontaneous
  Country: US (occurrence: US)
  Receive Date: 20131212
  Receipt Date: 20131212
  Transmission Date: 20140711
  Serious: No
  Sender: FDA-Public Use
  Company Number: US-PFIZER INC-2013354281

PATIENT
  Sex: Female

DRUGS (8)
  1. EFFEXOR XR [Suspect]
     Dosage: UNK
  2. GABAPENTIN [Suspect]
     Dosage: UNK
  3. ISOPTIN SR [Suspect]
     Dosage: UNK
  4. MONOPRIL [Suspect]
     Dosage: UNK
  5. VASOTEC [Suspect]
     Dosage: UNK
  6. TOPROL XL [Suspect]
     Dosage: UNK
  7. AVALIDE [Suspect]
     Dosage: UNK
  8. CODEINE [Suspect]
     Dosage: UNK

REACTIONS (1)
  - Drug hypersensitivity [Unknown]
